FAERS Safety Report 6011459-0 (Version None)
Quarter: 2008Q4

REPORT INFORMATION
  Report Type: 
  Country: None (occurrence: None)
  Receive Date: 20081218
  Receipt Date: 20070308
  Transmission Date: 20090506
  Serious: Yes (Death, Hospitalization, Other)
  Sender: FDA-Public Use
  Company Number: US-ROCHE-486693

PATIENT
  Sex: Female
  Weight: 60.8 kg

DRUGS (5)
  1. PEGASYS [Suspect]
     Indication: HEPATITIS C
     Route: 065
     Dates: start: 20060523
  2. PEGASYS [Suspect]
     Dosage: TREATMENT STOPPED DUE TO BONE MARROW COMPLICATIONS.
     Route: 065
     Dates: start: 20030101
  3. RIBAVIRIN [Suspect]
     Indication: HEPATITIS C
     Route: 065
  4. PROCRIT [Suspect]
     Route: 058
     Dates: start: 20060601, end: 20070126
  5. INFERGEN [Suspect]
     Indication: HEPATITIS C
     Dosage: TREATMENT STOPPED DUE TO BONE MARROW COMPLICATIONS.
     Route: 065
     Dates: start: 20050101

REACTIONS (10)
  - ANAEMIA [None]
  - ASCITES [None]
  - BONE MARROW FAILURE [None]
  - CHRONIC HEPATIC FAILURE [None]
  - DEATH [None]
  - ENCEPHALOPATHY [None]
  - HAEMATEMESIS [None]
  - INSOMNIA [None]
  - NEUTROPENIA [None]
  - THROMBOCYTOPENIA [None]
